FAERS Safety Report 5447480-0 (Version None)
Quarter: 2007Q3

REPORT INFORMATION
  Report Type: 
  Country: None (occurrence: None)
  Receive Date: 20070910
  Receipt Date: 20070831
  Transmission Date: 20080115
  Serious: Yes (Hospitalization)
  Sender: FDA-Public Use
  Company Number: A0678107A

PATIENT
  Age: 76 Year
  Sex: Female

DRUGS (10)
  1. COREG [Suspect]
     Indication: HYPERTENSION
     Dosage: 25MG TWICE PER DAY
     Route: 048
     Dates: start: 20040101
  2. SYNTHROID [Concomitant]
  3. SPIRONOLACTONE [Concomitant]
  4. PREDNISONE [Concomitant]
  5. DIGOXIN [Concomitant]
  6. CIMETIDINE HCL [Concomitant]
  7. ALBUTEROL [Concomitant]
  8. COZAAR [Concomitant]
  9. VITAMINS [Concomitant]
  10. CALCIUM [Concomitant]

REACTIONS (1)
  - MYOCARDIAL INFARCTION [None]
